FAERS Safety Report 7124959-7 (Version None)
Quarter: 2010Q4

REPORT INFORMATION
  Report Type: 
  Country: None (occurrence: None)
  Receive Date: 20101123
  Receipt Date: 20101123
  Transmission Date: 20110411
  Serious: Yes (Life-Threatening, Hospitalization, Disabling, Other)
  Sender: FDA-Public Use
  Company Number: None

PATIENT
  Age: 7 Month
  Sex: Female
  Weight: 8.5 kg

DRUGS (1)
  1. HYLANDS TEETHING TABLETS HYLANDS TEETHING TABLETS HYLANDS TEETHING TAB [Suspect]
     Indication: TEETHING
     Dosage: 2 TABLETS WHEN TEETHING PO
     Route: 048
     Dates: start: 20100801, end: 20101117

REACTIONS (6)
  - CONVULSION [None]
  - EYE ROLLING [None]
  - LOSS OF CONSCIOUSNESS [None]
  - METAL POISONING [None]
  - PRODUCT QUALITY ISSUE [None]
  - RESPIRATORY ARREST [None]
